FAERS Safety Report 7830784-1 (Version None)
Quarter: 2011Q4

REPORT INFORMATION
  Report Type: 
  Country: None (occurrence: None)
  Receive Date: 20111021
  Receipt Date: 20111018
  Transmission Date: 20120403
  Serious: Yes (Hospitalization)
  Sender: FDA-Public Use
  Company Number: US-GLAXOSMITHKLINE-A0943769A

PATIENT
  Age: 74 Year
  Sex: Male
  Weight: 90.9 kg

DRUGS (2)
  1. MELPHALAN HYDROCHLORIDE [Suspect]
     Indication: MULTIPLE MYELOMA
     Dosage: 12MG PER DAY
     Route: 048
     Dates: start: 20110406, end: 20110410
  2. PREDNISONE [Concomitant]
     Indication: MULTIPLE MYELOMA
     Dosage: 20MG PER DAY
     Route: 048

REACTIONS (1)
  - BACK PAIN [None]
